FAERS Safety Report 8673161 (Version 5)
Quarter: 2013Q2

REPORT INFORMATION
  Report Type: Report from Study
  Country: FR (occurrence: FR)
  Receive Date: 20120719
  Receipt Date: 20130426
  Transmission Date: 20140414
  Serious: Yes (Hospitalization, Other)
  Sender: FDA-Public Use
  Company Number: FR-MSD-2011SP030888

PATIENT
  Age: 74 Year
  Sex: Female
  Weight: 62 kg

DRUGS (9)
  1. BOCEPREVIR [Suspect]
     Indication: CHRONIC HEPATITIS C
     Dosage: 800 MG, TID
     Route: 048
     Dates: start: 20110516, end: 20110625
  2. MK-8908 [Suspect]
     Indication: CHRONIC HEPATITIS C
     Dosage: 1000 MG, QD
     Route: 048
     Dates: start: 20110404
  3. VIRAFERONPEG [Suspect]
     Indication: CHRONIC HEPATITIS C
     Dosage: 1.5 MICROGRAM PER KILOGRAM, QW
     Route: 058
     Dates: start: 20110404
  4. NEORECORMON [Concomitant]
     Indication: ANAEMIA
     Dosage: 30000 IU, QW
     Route: 058
     Dates: start: 20110530
  5. NEORECORMON [Concomitant]
     Dosage: 6000 IU, QW
     Dates: start: 20110614
  6. LASILIX [Concomitant]
     Indication: OEDEMA PERIPHERAL
     Dosage: 40 MG, QD
     Route: 048
     Dates: start: 20110530
  7. LASILIX [Concomitant]
     Dosage: 60 UNK, UNK
     Dates: start: 20110627
  8. LEVOTHYROX [Concomitant]
     Indication: THYROID DISORDER
     Dosage: 62.5 ?G, QD
     Route: 048
  9. ELTROMBOPAG OLAMINE [Concomitant]
     Indication: THROMBOCYTOPENIA
     Dosage: REVOLADE
     Route: 048
     Dates: start: 20110614

REACTIONS (6)
  - Thrombocytopenia [Recovered/Resolved]
  - Anaemia [Recovered/Resolved]
  - White blood cell count decreased [None]
  - Cystitis [None]
  - Oedema peripheral [None]
  - Weight increased [None]
